FAERS Safety Report 5188802-8 (Version None)
Quarter: 2006Q4

REPORT INFORMATION
  Report Type: 
  Country: None (occurrence: None)
  Receive Date: 20061215
  Receipt Date: 20061204
  Transmission Date: 20070319
  Serious: Yes (Hospitalization)
  Sender: FDA-Public Use
  Company Number: 2006AL003789

PATIENT
  Age: 66 Year
  Sex: Male

DRUGS (7)
  1. TRAMADOL HCL [Suspect]
     Indication: BACK PAIN
     Dosage: 450 MG; QD; PO
     Route: 048
     Dates: start: 20041201, end: 20050201
  2. ACETYLSALICYLATE [Concomitant]
  3. ISOSORBIT DINITRATE [Concomitant]
  4. METOPROLOL SUCCINATE [Concomitant]
  5. SIMVASTATIN [Concomitant]
  6. CLOPIDOGRELE [Concomitant]
  7. ACETAMINOPHEN [Concomitant]

REACTIONS (11)
  - ABNORMAL BEHAVIOUR [None]
  - AMNESIA [None]
  - COGNITIVE DISORDER [None]
  - CONFUSIONAL STATE [None]
  - DEPRESSED MOOD [None]
  - DISORIENTATION [None]
  - DISTURBANCE IN ATTENTION [None]
  - DRUG LEVEL INCREASED [None]
  - HALLUCINATION, AUDITORY [None]
  - INSOMNIA [None]
  - SOMNOLENCE [None]
